FAERS Safety Report 9825001 (Version 1)
Quarter: 2013Q4

REPORT INFORMATION
  Report Type: Spontaneous
  Country: US (occurrence: None)
  Receive Date: 20131025
  Receipt Date: 20131025
  Transmission Date: 20140711
  Serious: Yes (Other)
  Sender: FDA-Public Use
  Company Number: AP356-00047-SPO-US

PATIENT
  Age: 54 Year
  Sex: Male

DRUGS (1)
  1. BELVIQ (LORCASERIN HYDROCHLORIDE) [Suspect]

REACTIONS (2)
  - Sexual dysfunction [None]
  - Fatigue [None]
